FAERS Safety Report 6976866-8 (Version None)
Quarter: 2010Q3

REPORT INFORMATION
  Report Type: 
  Country: None (occurrence: None)
  Receive Date: 20100910
  Receipt Date: 20100903
  Transmission Date: 20110219
  Serious: Yes (Other)
  Sender: FDA-Public Use
  Company Number: B0626358A

PATIENT
  Sex: Male

DRUGS (6)
  1. ALKERAN [Suspect]
     Indication: STEM CELL TRANSPLANT
     Route: 042
     Dates: start: 20100111, end: 20100112
  2. CYCLOPHOSPHAMIDE [Concomitant]
     Indication: MULTIPLE MYELOMA
     Route: 065
  3. VINCRISTINE [Concomitant]
  4. ADRIAMYCIN PFS [Concomitant]
  5. DEXAMETHASONE [Concomitant]
  6. BORTEZOMIB [Concomitant]

REACTIONS (2)
  - MYOCLONIC EPILEPSY [None]
  - MYOCLONUS [None]
